FAERS Safety Report 4601692-4 (Version None)
Quarter: 2005Q1

REPORT INFORMATION
  Report Type: 
  Country: None (occurrence: None)
  Receive Date: 20050131
  Receipt Date: 20041104
  Transmission Date: 20050727
  Serious: Yes (Disabling, Other)
  Sender: FDA-Public Use
  Company Number: 200418535US

PATIENT
  Age: 35 Year
  Sex: Male

DRUGS (1)
  1. KETEK [Suspect]
     Indication: SINUSITIS
     Dosage: 800 MG QD PO
     Route: 048
     Dates: start: 20041013, end: 20041015

REACTIONS (2)
  - VISION BLURRED [None]
  - VISUAL BRIGHTNESS [None]
